FAERS Safety Report 10870066 (Version 2)
Quarter: 2015Q1

REPORT INFORMATION
  Report Type: Spontaneous
  Country: US (occurrence: None)
  Receive Date: 20150223
  Receipt Date: 20150316
  Transmission Date: 20150721
  Serious: Yes (Hospitalization, Other)
  Sender: FDA-Public Use
  Company Number: ADR-2015-00359

PATIENT
  Age: 33 Year
  Sex: Female

DRUGS (1)
  1. LIORESAL [Suspect]
     Active Substance: BACLOFEN
     Indication: MUSCLE SPASTICITY

REACTIONS (7)
  - Fall [None]
  - Eye pain [None]
  - Road traffic accident [None]
  - Device power source issue [None]
  - Head injury [None]
  - Headache [None]
  - Diplopia [None]

NARRATIVE: CASE EVENT DATE: 20150121
